FAERS Safety Report 5258371-2 (Version None)
Quarter: 2007Q1

REPORT INFORMATION
  Report Type: 
  Country: None (occurrence: None)
  Receive Date: 20070306
  Receipt Date: 20070306
  Transmission Date: 20070707
  Serious: Yes (Death)
  Sender: FDA-Public Use
  Company Number: None

PATIENT

DRUGS (1)
  1. METHADONE HCL [Suspect]
     Dosage: 2X10MG DOSE

REACTIONS (1)
  - DRUG TOXICITY [None]
